FAERS Safety Report 14518947 (Version 1)
Quarter: 2018Q1

REPORT INFORMATION
  Report Type: Spontaneous
  Country: US (occurrence: US)
  Receive Date: 20180209
  Receipt Date: 20180209
  Transmission Date: 20180509
  Serious: Yes (Life-Threatening)
  Sender: FDA-Public Use
  Company Number: None

PATIENT
  Age: 21 Year
  Sex: Female
  Weight: 69.4 kg

DRUGS (1)
  1. PROPOFOL. [Suspect]
     Active Substance: PROPOFOL
     Indication: PERIOPERATIVE ANALGESIA
     Dosage: OTHER FREQUENCY:INFUSION;?
     Route: 041
     Dates: start: 20180126, end: 20180126

REACTIONS (3)
  - Moaning [None]
  - Generalised tonic-clonic seizure [None]
  - Unresponsive to stimuli [None]

NARRATIVE: CASE EVENT DATE: 20180126
